FAERS Safety Report 8608182-2 (Version None)
Quarter: 2012Q3

REPORT INFORMATION
  Report Type: 
  Country: None (occurrence: None)
  Receive Date: 20120821
  Receipt Date: 20120814
  Transmission Date: 20120928
  Serious: No
  Sender: FDA-Public Use
  Company Number: US-BAYER-2012-084589

PATIENT
  Age: 30 Year
  Sex: Female
  Weight: 55.782 kg

DRUGS (1)
  1. ALEVE (CAPLET) [Suspect]
     Indication: HEADACHE
     Dosage: 2 DF, BID
     Dates: end: 20120814

REACTIONS (1)
  - HEADACHE [None]
